FAERS Safety Report 5491842-2 (Version None)
Quarter: 2007Q4

REPORT INFORMATION
  Report Type: 
  Country: None (occurrence: None)
  Receive Date: 20071018
  Receipt Date: 20071009
  Transmission Date: 20080405
  Serious: Yes (Death, Hospitalization)
  Sender: FDA-Public Use
  Company Number: 2007-04571

PATIENT
  Age: 36 Year
  Sex: Female

DRUGS (10)
  1. CLONAZEPAM [Suspect]
     Indication: CONVULSION
     Dates: start: 20070101, end: 20070101
  2. GABAPENTIN [Suspect]
     Indication: CONVULSION
     Dates: start: 20070101, end: 20070101
  3. PRIMIDONE [Suspect]
     Indication: CONVULSION
     Dates: start: 20070101, end: 20070101
  4. METOCLOPRAMIDE [Suspect]
     Indication: DRUG USE FOR UNKNOWN INDICATION
     Dates: start: 20070101, end: 20070101
  5. UNKNOWN NEUROLEPTICS() [Suspect]
     Dates: end: 20070101
  6. VALPROIC ACID [Suspect]
     Indication: CONVULSION
     Dates: start: 20070101, end: 20070101
  7. PHENYTOIN [Suspect]
     Indication: CONVULSION
     Dates: start: 20070101, end: 20070101
  8. CARBAMAZEPINE [Suspect]
     Indication: CONVULSION
     Dates: start: 20070101, end: 20070101
  9. LEVETIRACETAM [Suspect]
     Indication: CONVULSION
     Dates: start: 20070101, end: 20070101
  10. VENLAFAXINE HCL [Suspect]
     Indication: CONVULSION
     Dates: start: 20070101, end: 20070101

REACTIONS (1)
  - NEUROLEPTIC MALIGNANT SYNDROME [None]
